FAERS Safety Report 6398007-0 (Version None)
Quarter: 2009Q4

REPORT INFORMATION
  Report Type: 
  Country: None (occurrence: None)
  Receive Date: 20091013
  Receipt Date: 20091002
  Transmission Date: 20100525
  Serious: Yes (Hospitalization, Other)
  Sender: FDA-Public Use
  Company Number: US-ROCHE-555919

PATIENT
  Sex: Female
  Weight: 59 kg

DRUGS (13)
  1. ACCUTANE [Suspect]
     Indication: ACNE
     Dosage: THE PATIENT WAS DISPENSED ACCUTANE 40 MG ON 11 MAY 2004.
     Route: 048
     Dates: start: 20040511
  2. ACCUTANE [Suspect]
     Dosage: SHE WAS TAKING ACCUTANE EVERY MONDAY, WEDNESDAY, AND FRIDAY
     Route: 048
     Dates: start: 20040608
  3. ACCUTANE [Suspect]
     Route: 048
     Dates: start: 20040614
  4. ACCUTANE [Suspect]
     Dosage: SHE WAS TAKING ACCUTANE EVERY MONDAY, WEDNESDAY, AND FRIDAY
     Route: 048
     Dates: start: 20040908
  5. ACCUTANE [Suspect]
     Route: 048
     Dates: start: 20041015
  6. ACCUTANE [Suspect]
     Dosage: SHE WAS TAKING ACCUTANE ONE EVERY OTHER MONTH
     Route: 048
     Dates: start: 20050609
  7. ACCUTANE [Suspect]
     Route: 048
     Dates: start: 20050822
  8. ACCUTANE [Suspect]
     Dosage: SHE WAS TAKING ACCUTANE ONE WEEK ON AND ONE WEEK OFF
     Route: 048
     Dates: start: 20060410
  9. ACCUTANE [Suspect]
     Dosage: SHE WAS PRESCRIBED ACCUTANE 40 MG ON 18 JULY 2006
     Route: 048
     Dates: start: 20060718
  10. ACCUTANE [Suspect]
     Route: 048
     Dates: start: 20061011
  11. CLARAVIS [Suspect]
     Indication: ACNE
     Dosage: TH E PATIENT WAS DISPENSED CLARAVIS 40 MG CAPSULE ON 18 AUGUST 2006
     Route: 048
     Dates: start: 20060818, end: 20060901
  12. SOTRET [Suspect]
     Indication: ACNE
     Dosage: THE PATIENT WAS DISPENSED SOTRET 40 MG CAPSULE ON 20 SEPETEMBER 2006.
     Route: 048
     Dates: start: 20060920, end: 20061002
  13. TYLENOL (CAPLET) [Concomitant]
     Route: 065

REACTIONS (23)
  - ACCIDENTAL EXPOSURE [None]
  - ANEURYSMAL BONE CYST [None]
  - ARTHRALGIA [None]
  - ARTHROPATHY [None]
  - CHEST PAIN [None]
  - COLITIS [None]
  - CROHN'S DISEASE [None]
  - DERMATITIS [None]
  - DIARRHOEA [None]
  - DRY EYE [None]
  - FATIGUE [None]
  - GASTROENTERITIS [None]
  - ILEITIS [None]
  - INFLAMMATORY BOWEL DISEASE [None]
  - IRRITABLE BOWEL SYNDROME [None]
  - LIP DRY [None]
  - MYALGIA [None]
  - NERVOUS SYSTEM DISORDER [None]
  - OTITIS MEDIA [None]
  - PNEUMATOSIS INTESTINALIS [None]
  - SMALL INTESTINAL OBSTRUCTION [None]
  - UPPER RESPIRATORY TRACT INFECTION [None]
  - XEROSIS [None]
